FAERS Safety Report 15940917 (Version 5)
Quarter: 2019Q2

REPORT INFORMATION
  Report Type: Spontaneous
  Country: FR (occurrence: FR)
  Receive Date: 20190208
  Receipt Date: 20190405
  Transmission Date: 20190711
  Serious: Yes (Hospitalization, Other)
  Sender: FDA-Public Use
  Company Number: FR-009507513-1902FRA003111

PATIENT
  Age: 65 Year
  Sex: Male
  Weight: 85 kg

DRUGS (9)
  1. EMEND [Suspect]
     Active Substance: APREPITANT
     Indication: PROPHYLAXIS OF NAUSEA AND VOMITING
     Dosage: 125 MILLIGRAM ON DAY 1
     Route: 048
     Dates: start: 20190205
  2. EMEND [Suspect]
     Active Substance: APREPITANT
     Dosage: 80 MILLIGRAM
     Route: 048
     Dates: start: 201902
  3. METHYLPREDNISOLONE. [Suspect]
     Active Substance: METHYLPREDNISOLONE
     Indication: PREMEDICATION
     Dosage: 120 MILLIGRAM
     Route: 042
     Dates: start: 20190205, end: 20190205
  4. ATROPINE. [Concomitant]
     Active Substance: ATROPINE
     Indication: PREMEDICATION
     Dosage: 0.25 MILLIGRAM
     Route: 058
     Dates: start: 20190205, end: 20190205
  5. LEVOLEUCOVORIN CALCIUM. [Concomitant]
     Active Substance: LEVOLEUCOVORIN CALCIUM
     Indication: CHEMOTHERAPY
     Dosage: 400 MILLIGRAM
     Dates: start: 20190205, end: 20190205
  6. IRINOTECAN HYDROCHLORIDE. [Suspect]
     Active Substance: IRINOTECAN HYDROCHLORIDE
     Indication: COLORECTAL CANCER
     Dosage: 360 MILLIGRAM
     Dates: start: 20190205
  7. EMEND [Suspect]
     Active Substance: APREPITANT
     Dosage: 80 MILLIGRAM
     Route: 048
     Dates: start: 201902
  8. AVASTIN [Suspect]
     Active Substance: BEVACIZUMAB
     Indication: COLORECTAL CANCER
     Dosage: 425 MILLIGRAM
     Dates: start: 20190205
  9. ONDANSETRON [Concomitant]
     Active Substance: ONDANSETRON
     Indication: PREMEDICATION
     Dosage: 8 MILLIGRAM
     Route: 042
     Dates: start: 20190205, end: 20190205

REACTIONS (7)
  - Pyrexia [Unknown]
  - Toxic skin eruption [Unknown]
  - Vomiting [Unknown]
  - Flushing [Unknown]
  - Nausea [Unknown]
  - Erythema [Recovered/Resolved]
  - Product colour issue [Unknown]

NARRATIVE: CASE EVENT DATE: 201902
